FAERS Safety Report 10566288 (Version 1)
Quarter: 2014Q4

REPORT INFORMATION
  Report Type: Spontaneous
  Country: ES (occurrence: ES)
  Receive Date: 20141105
  Receipt Date: 20141105
  Transmission Date: 20150529
  Serious: Yes (Life-Threatening, Hospitalization)
  Sender: FDA-Public Use
  Company Number: ES-SA-2014SA146102

PATIENT
  Age: 82 Year
  Sex: Female

DRUGS (12)
  1. DEXKETOPROFEN [Interacting]
     Active Substance: DEXKETOPROFEN
     Indication: BACK PAIN
     Dosage: STRENGTH: 25 MG
     Route: 048
     Dates: start: 20131209, end: 20131227
  2. PANTOPRAZOLE [Concomitant]
     Active Substance: PANTOPRAZOLE SODIUM
     Indication: PROPHYLAXIS AGAINST GASTROINTESTINAL ULCER
     Dosage: 1 CP
     Route: 048
  3. DEXKETOPROFEN [Interacting]
     Active Substance: DEXKETOPROFEN
     Indication: BACK PAIN
     Dosage: STRENGTH: 25 MG
     Route: 048
     Dates: start: 20131209, end: 20131227
  4. RESINCALCIO [Concomitant]
     Indication: CHRONIC KIDNEY DISEASE
     Dosage: 1-1-1
     Route: 048
     Dates: start: 2012
  5. PEPSAMAR [Concomitant]
     Indication: CHRONIC KIDNEY DISEASE
     Dosage: 0-1-1
     Route: 048
  6. MIMPARA [Concomitant]
     Active Substance: CINACALCET HYDROCHLORIDE
     Indication: CHRONIC KIDNEY DISEASE
     Dosage: 0-0-1
     Route: 048
  7. BUPRENORPHINE HCL [Concomitant]
     Active Substance: BUPRENORPHINE HYDROCHLORIDE
     Indication: PAIN
     Dosage: 1/4 L X V
     Route: 048
     Dates: start: 2011
  8. CLEXANE [Suspect]
     Active Substance: ENOXAPARIN SODIUM
     Indication: ATRIAL FIBRILLATION
     Dosage: 40 MG
     Route: 058
     Dates: start: 20131209, end: 20131227
  9. MEGEFREN [Concomitant]
     Dosage: 1-0-0
     Route: 048
     Dates: start: 2011
  10. MULTAQ [Concomitant]
     Active Substance: DRONEDARONE
     Indication: ATRIAL FIBRILLATION
     Dosage: 1-0-1
     Route: 048
     Dates: start: 20131209
  11. SERTRALINE [Interacting]
     Active Substance: SERTRALINE HYDROCHLORIDE
     Indication: DEPRESSION
     Dosage: STRENGTH: 100MG
     Route: 048
     Dates: start: 20130918, end: 20131227
  12. ATORVASTATIN [Concomitant]
     Active Substance: ATORVASTATIN
     Indication: DYSLIPIDAEMIA
     Dosage: 0-0-1/2
     Route: 048

REACTIONS (1)
  - Duodenal perforation [Recovered/Resolved with Sequelae]

NARRATIVE: CASE EVENT DATE: 20131227
